FAERS Safety Report 11885360 (Version 4)
Quarter: 2016Q3

REPORT INFORMATION
  Report Type: Spontaneous
  Country: US (occurrence: US)
  Receive Date: 20160104
  Receipt Date: 20160705
  Transmission Date: 20161109
  Serious: Yes (Other)
  Sender: FDA-Public Use
  Company Number: US-BAYER-2016-000361

PATIENT
  Age: 23 Year
  Sex: Female

DRUGS (1)
  1. SKYLA [Suspect]
     Active Substance: LEVONORGESTREL
     Indication: CONTRACEPTION
     Dosage: 14 MCG/24HR, CONT
     Route: 015
     Dates: start: 20150105, end: 20150828

REACTIONS (5)
  - Guillain-Barre syndrome [None]
  - Hemiplegic migraine [None]
  - Drug ineffective [None]
  - Pregnancy with contraceptive device [None]
  - Fibromyalgia [None]

NARRATIVE: CASE EVENT DATE: 20150828
